FAERS Safety Report 4855346-X (Version None)
Quarter: 2005Q4

REPORT INFORMATION
  Report Type: 
  Country: None (occurrence: None)
  Receive Date: 20051214
  Receipt Date: 20051123
  Transmission Date: 20060501
  Serious: Yes (Life-Threatening, Other)
  Sender: FDA-Public Use
  Company Number: US200511002959

PATIENT
  Sex: Male

DRUGS (2)
  1. HUMULIN L [Suspect]
     Dates: start: 19760101
  2. HUMULIN R [Suspect]
     Dates: start: 19710405

REACTIONS (11)
  - ABASIA [None]
  - BLOOD GLUCOSE DECREASED [None]
  - BLOOD GLUCOSE INCREASED [None]
  - CATARACT [None]
  - DIABETIC COMA [None]
  - FEELING ABNORMAL [None]
  - HYPOAESTHESIA [None]
  - IMPAIRED WORK ABILITY [None]
  - LOSS OF CONSCIOUSNESS [None]
  - NEUROPATHY PERIPHERAL [None]
  - VISUAL ACUITY REDUCED [None]
